FAERS Safety Report 21160288 (Version 1)
Quarter: 2022Q3

REPORT INFORMATION
  Report Type: Spontaneous
  Country: US (occurrence: None)
  Receive Date: 20220801
  Receipt Date: 20220801
  Transmission Date: 20221027
  Serious: No
  Sender: FDA-Public Use
  Company Number: None

PATIENT
  Age: 74 Year
  Sex: Female
  Weight: 73.94 kg

DRUGS (14)
  1. EVEROLIMUS [Suspect]
     Active Substance: EVEROLIMUS
     Indication: Breast cancer female
     Dosage: OTHER QUANTITY : 7.5MG;?FREQUENCY : DAILY;?
     Route: 048
  2. CALCIUM 1000 + D [Concomitant]
  3. CLONIDINE HYDROCHLORIDE [Concomitant]
     Active Substance: CLONIDINE HYDROCHLORIDE
  4. FAMOTIDINE [Concomitant]
     Active Substance: FAMOTIDINE
  5. FUROSEMIDE [Concomitant]
     Active Substance: FUROSEMIDE
  6. HYDRALAZINE HCL [Concomitant]
     Active Substance: HYDRALAZINE HYDROCHLORIDE
  7. LISINOPRIL [Concomitant]
     Active Substance: LISINOPRIL
  8. LORATADINE [Concomitant]
     Active Substance: LORATADINE
  9. MONTALUKAST SODIUM [Concomitant]
  10. MECLIZINE HYDROCHLORIDE [Concomitant]
     Active Substance: MECLIZINE HYDROCHLORIDE
  11. ACETAMINOPHEN\OXYCODONE HYDROCHLORIDE [Concomitant]
     Active Substance: ACETAMINOPHEN\OXYCODONE HYDROCHLORIDE
  12. PANTOPRAZOLE SODIUM [Concomitant]
     Active Substance: PANTOPRAZOLE SODIUM
  13. PROCHLOPERAZINE MALEATE [Concomitant]
  14. XGEVA [Concomitant]
     Active Substance: DENOSUMAB

REACTIONS (2)
  - Disease progression [None]
  - Therapy cessation [None]
